FAERS Safety Report 6306222-7 (Version None)
Quarter: 2009Q3

REPORT INFORMATION
  Report Type: 
  Country: None (occurrence: None)
  Receive Date: 20090812
  Receipt Date: 20090807
  Transmission Date: 20100115
  Serious: Yes (Hospitalization)
  Sender: FDA-Public Use
  Company Number: GB-ASTRAZENECA-2009SE07234

PATIENT
  Age: 62 Year
  Sex: Female

DRUGS (3)
  1. SYMBICORT [Suspect]
     Indication: ASTHMA
     Dosage: 200/6 UG
     Route: 055
     Dates: start: 20090101
  2. BRICANYL [Concomitant]
  3. ATROVENT [Concomitant]

REACTIONS (3)
  - ASTHMA [None]
  - VOCAL CORD PARALYSIS [None]
  - WHEEZING [None]
